FAERS Safety Report 8338522 (Version 4)
Quarter: 2012Q4

REPORT INFORMATION
  Report Type: 
  Country: US (occurrence: US)
  Receive Date: 20120117
  Receipt Date: 20120924
  Transmission Date: 20130627
  Serious: Yes (Death, Hospitalization, Congenital Anomaly, Other)
  Sender: FDA-Public Use
  Company Number: US-PFIZER INC-2012011087

PATIENT
  Age: 0 None
  Sex: Male
  Weight: 3.95 kg

DRUGS (9)
  1. ZOLOFT [Suspect]
     Indication: DEPRESSION
     Dosage: 100 mg, 2x/day
     Route: 064
     Dates: start: 1999, end: 2002
  2. ZOLOFT [Suspect]
     Indication: BIPOLAR DISORDER
  3. SEROQUEL [Concomitant]
     Indication: SLEEP DISORDER
     Dosage: 300 mg, unk
     Route: 064
  4. CYMBALTA [Concomitant]
     Dosage: UNK
     Route: 064
  5. TRAZODONE [Concomitant]
     Indication: SLEEP DISORDER
     Dosage: 100 mg, unk
     Route: 064
  6. LISINOPRIL [Concomitant]
     Indication: HYPERTENSION
     Dosage: UNK
     Route: 064
  7. ACTOS [Concomitant]
     Indication: TYPE 2 DIABETES MELLITUS
     Dosage: 15 mg, UNK
     Route: 064
  8. HUMULIN 70/30 [Concomitant]
     Indication: TYPE 2 DIABETES MELLITUS
     Dosage: UNK
     Route: 064
  9. GLYBURIDE [Concomitant]
     Indication: TYPE 2 DIABETES MELLITUS
     Dosage: 60 mg, UNK
     Route: 064

REACTIONS (13)
  - Sepsis [Fatal]
  - Convulsion [Unknown]
  - Maternal exposure timing unspecified [Unknown]
  - Congenital anomaly [Not Recovered/Not Resolved]
  - Cleft palate [Not Recovered/Not Resolved]
  - Nose deformity [Not Recovered/Not Resolved]
  - Skull malformation [Not Recovered/Not Resolved]
  - Foetal damage [Unknown]
  - Dyspnoea [Unknown]
  - Congenital eye disorder [Not Recovered/Not Resolved]
  - Feeding disorder [Unknown]
  - Activities of daily living impaired [Unknown]
  - Gait disturbance [Unknown]
